FAERS Safety Report 17195448 (Version 2)
Quarter: 2024Q4

REPORT INFORMATION
  Report Type: Spontaneous
  Country: CZ (occurrence: CZ)
  Receive Date: 20191224
  Receipt Date: 20241223
  Transmission Date: 20250115
  Serious: Yes (Other)
  Sender: ALKEM
  Company Number: CZ-TEVA-2019-CZ-1044806

PATIENT
  Age: 38 Year
  Sex: Female

DRUGS (5)
  1. MYCOPHENOLATE MOFETIL [Suspect]
     Active Substance: MYCOPHENOLATE MOFETIL
     Indication: Immunosuppression
     Dosage: 1 GRAM, BID (EVERY 12 HOUR)
     Route: 065
     Dates: start: 20170217, end: 20170404
  2. SOLU-MEDROL [Suspect]
     Active Substance: METHYLPREDNISOLONE SODIUM SUCCINATE
     Indication: Immunosuppression
     Dosage: 2 MILLIGRAM/KILOGRAM, QD (EVERY 1 DAY) 1 WEEKS
     Route: 042
     Dates: start: 20170210, end: 20170217
  3. SOLU-MEDROL [Suspect]
     Active Substance: METHYLPREDNISOLONE SODIUM SUCCINATE
     Dosage: 6 MILLIGRAM/KILOGRAM, QD (EVERY 1 DAY)
     Route: 042
     Dates: start: 20170218
  4. SOLU-MEDROL [Suspect]
     Active Substance: METHYLPREDNISOLONE SODIUM SUCCINATE
     Dosage: 4 MILLIGRAM/KILOGRAM, QD (EVERY 1 DAY)
     Route: 042
     Dates: end: 20170407
  5. URSODIOL [Concomitant]
     Active Substance: URSODIOL
     Indication: Product used for unknown indication
     Dosage: 1500 MILLIGRAM, OD
     Route: 065

REACTIONS (7)
  - Neutropenia [Recovering/Resolving]
  - Respiratory tract infection [Recovered/Resolved]
  - Thrombocytopenia [Recovering/Resolving]
  - Blood thyroid stimulating hormone decreased [Recovering/Resolving]
  - Muscular weakness [Recovering/Resolving]
  - Mental disorder [Recovering/Resolving]
  - Decreased appetite [Recovering/Resolving]

NARRATIVE: CASE EVENT DATE: 20170220
